FAERS Safety Report 4608962-4 (Version None)
Quarter: 2005Q1

REPORT INFORMATION
  Report Type: 
  Country: None (occurrence: None)
  Receive Date: 20050311
  Receipt Date: 20050311
  Transmission Date: 20050727
  Serious: No
  Sender: FDA-Public Use
  Company Number: None

PATIENT
  Age: 84 Year
  Sex: Male

DRUGS (5)
  1. ZOCOR [Suspect]
     Indication: HYPERLIPIDAEMIA
     Dosage: ORAL 40.0 MILLIGRAM
     Route: 048
     Dates: start: 20040804, end: 20050104
  2. RAMIPRIL [Concomitant]
  3. WARFARIN [Concomitant]
  4. RABEPRAZOLE SODIUM [Concomitant]
  5. FINASTERIDE [Concomitant]

REACTIONS (4)
  - ALANINE AMINOTRANSFERASE INCREASED [None]
  - ASPARTATE AMINOTRANSFERASE INCREASED [None]
  - LIVER FUNCTION TEST ABNORMAL [None]
  - RHABDOMYOLYSIS [None]
